FAERS Safety Report 10188816 (Version 1)
Quarter: 2014Q2

REPORT INFORMATION
  Report Type: Spontaneous
  Country: US (occurrence: US)
  Receive Date: 20140522
  Receipt Date: 20140522
  Transmission Date: 20141212
  Serious: No
  Sender: FDA-Public Use
  Company Number: US-SA-2014SA024607

PATIENT
  Age: 53 Year
  Sex: Male

DRUGS (8)
  1. LANTUS SOLOSTAR [Suspect]
     Indication: TYPE 2 DIABETES MELLITUS
     Dosage: DOSE:34 UNIT(S)
     Route: 058
     Dates: start: 20121001
  2. SOLOSTAR [Concomitant]
     Indication: TYPE 2 DIABETES MELLITUS
     Dates: start: 201210
  3. VICTOZA [Concomitant]
     Indication: DIABETES MELLITUS
  4. LISINOPRIL [Concomitant]
     Indication: DIABETES MELLITUS
  5. ERGOCALCIFEROL [Concomitant]
     Indication: VITAMIN D DECREASED
  6. PRILOSEC [Concomitant]
     Indication: DYSPEPSIA
  7. MULTIVITAMINS [Concomitant]
     Indication: ROUTINE HEALTH MAINTENANCE
  8. ANDROGEL [Concomitant]
     Indication: BLOOD TESTOSTERONE DECREASED

REACTIONS (2)
  - Abdominal discomfort [Recovered/Resolved]
  - Feeling jittery [Recovered/Resolved]
